FAERS Safety Report 10189711 (Version 1)
Quarter: 2014Q2

REPORT INFORMATION
  Report Type: Spontaneous
  Country: US (occurrence: US)
  Receive Date: 20140522
  Receipt Date: 20140522
  Transmission Date: 20141212
  Serious: Yes (Other)
  Sender: FDA-Public Use
  Company Number: US-SA-2013SA098011

PATIENT
  Sex: Male

DRUGS (2)
  1. LANTUS [Suspect]
     Indication: DIABETES MELLITUS
     Dosage: DOSE:64 UNIT(S)
     Route: 058
  2. HUMULIN [Concomitant]
     Dosage: HUMULIN 70/30

REACTIONS (4)
  - Coma [Unknown]
  - Adverse event [Unknown]
  - Confusional state [Recovering/Resolving]
  - Hypertension [Unknown]
